FAERS Safety Report 5347056-X (Version None)
Quarter: 2007Q2

REPORT INFORMATION
  Report Type: 
  Country: None (occurrence: None)
  Receive Date: 20070604
  Receipt Date: 20070521
  Transmission Date: 20071010
  Serious: Yes (Hospitalization)
  Sender: FDA-Public Use
  Company Number: FABR-12003

PATIENT
  Sex: Male
  Weight: 77.1115 kg

DRUGS (4)
  1. FABRAZYME [Suspect]
     Indication: FABRY'S DISEASE
     Dosage: 70 MG Q2WKS IV
     Route: 042
     Dates: start: 20031202
  2. ASPIRIN [Concomitant]
  3. BETAPACE. MFR: BERLEX [Concomitant]
  4. UNSPECIFIED MEDICATION [Concomitant]

REACTIONS (1)
  - OSTEOMYELITIS [None]
